FAERS Safety Report 10202664 (Version 1)
Quarter: 2014Q2

REPORT INFORMATION
  Report Type: Spontaneous
  Country: DE (occurrence: FR)
  Receive Date: 20140528
  Receipt Date: 20140528
  Transmission Date: 20141212
  Serious: Yes (Hospitalization)
  Sender: FDA-Public Use
  Company Number: FR-FRI-1000067571

PATIENT
  Age: 87 Year
  Sex: Female

DRUGS (11)
  1. MEMANTINE [Suspect]
     Dosage: 10 MG
     Route: 048
     Dates: start: 201112, end: 20140108
  2. REMINYL [Suspect]
     Dosage: 16 MG
     Route: 048
     Dates: start: 201202, end: 201311
  3. PERINDOPRIL [Concomitant]
     Dosage: 2 MG
  4. PLAVIX [Concomitant]
     Dosage: 75 MG
     Dates: end: 20131230
  5. PARACETAMOL [Concomitant]
     Dosage: 3 G
  6. FORLAX [Concomitant]
     Dosage: 1 DF
  7. SERESTA [Concomitant]
     Dosage: 30 MG
  8. XALATAN [Concomitant]
     Dosage: 1 DF
  9. PILOCARPINE [Concomitant]
     Dosage: 3 DF
  10. ARTIFICIAL TEARS [Concomitant]
     Dosage: 3 DF
  11. DIFFU K [Concomitant]
     Dosage: 1 DF

REACTIONS (6)
  - Angle closure glaucoma [Not Recovered/Not Resolved]
  - Urinary retention [Not Recovered/Not Resolved]
  - Anxiety [Not Recovered/Not Resolved]
  - Abnormal behaviour [Not Recovered/Not Resolved]
  - Headache [Not Recovered/Not Resolved]
  - Fall [Not Recovered/Not Resolved]
